FAERS Safety Report 5705943-4 (Version None)
Quarter: 2008Q2

REPORT INFORMATION
  Report Type: 
  Country: None (occurrence: None)
  Receive Date: 20080411
  Receipt Date: 20080401
  Transmission Date: 20081010
  Serious: Yes (Other)
  Sender: FDA-Public Use
  Company Number: 2008007500

PATIENT
  Age: 71 Year
  Sex: Female

DRUGS (1)
  1. FRESHBURST LISTERINE ANTISEPTIC (MENTHOL, METHYL SALICYLATE, EUCALYPTO [Suspect]
     Dosage: UNSPECIFIED, ORAL
     Route: 048
     Dates: start: 20080322, end: 20080324

REACTIONS (3)
  - APHTHOUS STOMATITIS [None]
  - ORAL PAIN [None]
  - SWELLING FACE [None]
